FAERS Safety Report 6456279-8 (Version None)
Quarter: 2009Q4

REPORT INFORMATION
  Report Type: 
  Country: None (occurrence: None)
  Receive Date: 20091125
  Receipt Date: 20091112
  Transmission Date: 20100525
  Serious: No
  Sender: FDA-Public Use
  Company Number: US-ELI_LILLY_AND_COMPANY-US200911003748

PATIENT
  Age: 59 Year
  Sex: Male

DRUGS (4)
  1. CIALIS [Suspect]
     Dosage: UNK, UNKNOWN
     Route: 065
  2. VIAGRA [Concomitant]
     Dosage: UNK, UNKNOWN
     Route: 065
  3. LISINOPRIL + HIDROCLOROTIAZIDA [Concomitant]
     Dosage: UNK, UNKNOWN
     Route: 065
  4. NORVASC [Concomitant]
     Dosage: UNK, UNKNOWN
     Route: 065
     Dates: start: 20090612

REACTIONS (1)
  - VISION BLURRED [None]
